FAERS Safety Report 10147131 (Version 2)
Quarter: 2014Q2

REPORT INFORMATION
  Report Type: Report from Study
  Country: US (occurrence: US)
  Receive Date: 20140501
  Receipt Date: 20140516
  Transmission Date: 20141212
  Serious: Yes (Death, Other)
  Sender: FDA-Public Use
  Company Number: PHEH2014US008695

PATIENT
  Sex: Female

DRUGS (2)
  1. GLEEVEC [Suspect]
     Indication: GASTRIC CANCER
     Dosage: 400 MG, QD
     Route: 048
  2. GLEEVEC [Suspect]
     Indication: SOFT TISSUE SARCOMA

REACTIONS (3)
  - Intestinal obstruction [Fatal]
  - Post procedural complication [Fatal]
  - Sepsis [Unknown]
